FAERS Safety Report 7794434-5 (Version None)
Quarter: 2011Q4

REPORT INFORMATION
  Report Type: 
  Country: None (occurrence: None)
  Receive Date: 20111004
  Receipt Date: 20111004
  Transmission Date: 20120403
  Serious: Yes (Other)
  Sender: FDA-Public Use
  Company Number: None

PATIENT
  Age: 44 Year
  Sex: Female
  Weight: 88.45 kg

DRUGS (1)
  1. AVELOX [Suspect]
     Indication: SKIN INFECTION
     Dosage: 400MG
     Route: 048
     Dates: start: 20110921, end: 20110923

REACTIONS (3)
  - JOINT STIFFNESS [None]
  - ARTHRALGIA [None]
  - JOINT SWELLING [None]
